FAERS Safety Report 14374977 (Version 1)
Quarter: 2018Q1

REPORT INFORMATION
  Report Type: Spontaneous
  Country: US (occurrence: US)
  Receive Date: 20180110
  Receipt Date: 20180110
  Transmission Date: 20180509
  Serious: Yes (Hospitalization)
  Sender: FDA-Public Use
  Company Number: None

PATIENT
  Age: 68 Year
  Sex: Male
  Weight: 96.2 kg

DRUGS (2)
  1. CASODEX [Suspect]
     Active Substance: BICALUTAMIDE
     Dates: end: 20151218
  2. LEUPROLIDE ACETATE. [Suspect]
     Active Substance: LEUPROLIDE ACETATE
     Dates: end: 20150618

REACTIONS (8)
  - Flank pain [None]
  - Vomiting [None]
  - Bladder disorder [None]
  - Hydronephrosis [None]
  - Necrosis [None]
  - Dysuria [None]
  - Nausea [None]
  - Radiation injury [None]

NARRATIVE: CASE EVENT DATE: 20171214
